FAERS Safety Report 6172099-6 (Version None)
Quarter: 2009Q2

REPORT INFORMATION
  Report Type: 
  Country: None (occurrence: None)
  Receive Date: 20090424
  Receipt Date: 20090211
  Transmission Date: 20091009
  Serious: No
  Sender: FDA-Public Use
  Company Number: ALL1-2009-00373

PATIENT
  Age: 48 Year
  Sex: Female
  Weight: 81.6 kg

DRUGS (5)
  1. VYVANSE [Suspect]
     Indication: ATTENTION DEFICIT/HYPERACTIVITY DISORDER
     Dosage: 20 MG, 1X/DAY:QD, ORAL ; 40 MG, 1X/DAY:QD, ORAL
     Route: 048
     Dates: start: 20081026, end: 20081001
  2. VYVANSE [Suspect]
     Indication: ATTENTION DEFICIT/HYPERACTIVITY DISORDER
     Dosage: 20 MG, 1X/DAY:QD, ORAL ; 40 MG, 1X/DAY:QD, ORAL
     Route: 048
     Dates: start: 20090101
  3. WELLBUTRIN [Concomitant]
  4. LORAZEPAM [Concomitant]
  5. FLUOXETINE HCL [Concomitant]

REACTIONS (1)
  - DRUG INEFFECTIVE [None]
